FAERS Safety Report 10866124 (Version 1)
Quarter: 2015Q1

REPORT INFORMATION
  Report Type: Spontaneous
  Country: TR (occurrence: None)
  Receive Date: 20150219
  Receipt Date: 20150219
  Transmission Date: 20150721
  Serious: Yes (Hospitalization)
  Sender: FDA-Public Use
  Company Number: UCM201502-000101

PATIENT
  Sex: Female
  Weight: 2.68 kg

DRUGS (2)
  1. DIVALPROEX SODIUM. [Suspect]
     Active Substance: DIVALPROEX SODIUM
     Route: 064
  2. LAMOTRIGINE (LAMOTRIGINE) (LAMOTRIGINE) [Suspect]
     Active Substance: LAMOTRIGINE
     Route: 064

REACTIONS (9)
  - Hypotonia [None]
  - Caesarean section [None]
  - Apgar score low [None]
  - Drug interaction [None]
  - Maternal drugs affecting foetus [None]
  - Decreased activity [None]
  - Poor sucking reflex [None]
  - Grunting [None]
  - Breech presentation [None]
